FAERS Safety Report 20429903 (Version 1)
Quarter: 2022Q1

REPORT INFORMATION
  Report Type: Report from Study
  Country: FR (occurrence: FR)
  Receive Date: 20220204
  Receipt Date: 20220204
  Transmission Date: 20220423
  Serious: Yes (Hospitalization)
  Sender: FDA-Public Use
  Company Number: FR-SERVIER-S18010989

PATIENT

DRUGS (12)
  1. ONCASPAR [Suspect]
     Active Substance: PEGASPARGASE
     Indication: Acute lymphocytic leukaemia
     Dosage: 4800 IU, QD
     Route: 042
     Dates: start: 20181115, end: 20181115
  2. METHOTREXATE [Suspect]
     Active Substance: METHOTREXATE
     Indication: Acute lymphocytic leukaemia
     Dosage: 15 MG, ONE DOSE
     Route: 037
     Dates: start: 20181115, end: 20181115
  3. DEXAMETHASONE [Suspect]
     Active Substance: DEXAMETHASONE
     Indication: Acute lymphocytic leukaemia
     Dosage: 19 MG (DAY1 TO DAY 7, DAY 15 TO DAY 21)
     Route: 048
     Dates: start: 20181112, end: 20181202
  4. VINCRISTINE [Suspect]
     Active Substance: VINCRISTINE
     Indication: Acute lymphocytic leukaemia
     Dosage: 2 MG, 1X/WEEK
     Route: 042
     Dates: start: 20181112, end: 20181126
  5. DOXORUBICIN [Suspect]
     Active Substance: DOXORUBICIN
     Indication: Acute lymphocytic leukaemia
     Dosage: 48 MG, 1X/WEEK
     Route: 042
     Dates: start: 20181112, end: 20181126
  6. HYDROCORTISONE [Suspect]
     Active Substance: HYDROCORTISONE
     Indication: Acute lymphocytic leukaemia
     Dosage: 15 MG, ONE DOSE
     Route: 037
     Dates: start: 20181115, end: 20181115
  7. CYTARABINE [Suspect]
     Active Substance: CYTARABINE
     Indication: Acute lymphocytic leukaemia
     Dosage: 30 MG, ONE DOSE
     Route: 037
     Dates: start: 20181115, end: 20181115
  8. COTRIMOXAZOLE [Concomitant]
     Active Substance: SULFAMETHOXAZOLE\TRIMETHOPRIM
     Indication: Antifungal prophylaxis
     Dosage: 800 MG, QD
     Route: 048
  9. TN UNSPECIFIED [Concomitant]
     Indication: Infection prophylaxis
     Dosage: 1 G, QD
     Route: 048
  10. TN UNSPECIFIED [Concomitant]
     Indication: Prophylaxis of nausea and vomiting
     Dosage: 16 MG, QD
     Route: 042
  11. TN UNSPECIFIED [Concomitant]
     Indication: Prophylaxis of nausea and vomiting
     Dosage: 150 MG, QD
     Route: 042
  12. TN UNSPECIFIED [Concomitant]
     Indication: Gastritis prophylaxis
     Dosage: 30 MG, QD
     Route: 048

REACTIONS (1)
  - Delusional disorder, grandiose type [Recovered/Resolved]

NARRATIVE: CASE EVENT DATE: 20181210
